FAERS Safety Report 6682906-6 (Version None)
Quarter: 2010Q2

REPORT INFORMATION
  Report Type: 
  Country: None (occurrence: None)
  Receive Date: 20100415
  Receipt Date: 20100409
  Transmission Date: 20101027
  Serious: No
  Sender: FDA-Public Use
  Company Number: B0645027A

PATIENT
  Sex: Female

DRUGS (2)
  1. TYKERB [Suspect]
     Indication: BREAST CANCER RECURRENT
     Dosage: 1250MG PER DAY
     Route: 048
  2. XELODA [Concomitant]
     Dosage: 2000MGM2 PER DAY
     Route: 048

REACTIONS (1)
  - NO ADVERSE EVENT [None]
